FAERS Safety Report 10159037 (Version 1)
Quarter: 2014Q2

REPORT INFORMATION
  Report Type: Spontaneous
  Country: GB (occurrence: GB)
  Receive Date: 20140508
  Receipt Date: 20140508
  Transmission Date: 20141212
  Serious: Yes (Hospitalization, Disabling)
  Sender: FDA-Public Use
  Company Number: GB-ROCHE-1396341

PATIENT
  Age: 60 Year
  Sex: Male
  Weight: 101.6 kg

DRUGS (2)
  1. NAPROXEN [Suspect]
     Indication: MUSCULOSKELETAL PAIN
     Route: 048
     Dates: start: 201403
  2. CO-CODAMOL [Concomitant]

REACTIONS (4)
  - Gastrointestinal haemorrhage [Unknown]
  - Gastrointestinal ulcer [Unknown]
  - Drug ineffective [Unknown]
  - Presyncope [Unknown]
